FAERS Safety Report 10046758 (Version 1)
Quarter: 2014Q1

REPORT INFORMATION
  Report Type: Spontaneous
  Country: US (occurrence: US)
  Receive Date: 20140331
  Receipt Date: 20140331
  Transmission Date: 20141002
  Serious: Yes (Hospitalization, Other)
  Sender: FDA-Public Use
  Company Number: US-AMGEN-USASP2014022038

PATIENT
  Age: 59 Year
  Sex: Male

DRUGS (2)
  1. ENBREL [Suspect]
     Indication: PSORIATIC ARTHROPATHY
     Dosage: 50 MG, QWK
     Route: 065
     Dates: start: 2007, end: 2010
  2. ENBREL [Suspect]
     Indication: PSORIASIS

REACTIONS (5)
  - Nephrolithiasis [Recovered/Resolved]
  - Renal failure [Recovered/Resolved]
  - Prostate cancer [Unknown]
  - Hernia [Recovered/Resolved]
  - Blood urine present [Recovered/Resolved]
